FAERS Safety Report 5081777-1 (Version None)
Quarter: 2006Q3

REPORT INFORMATION
  Report Type: 
  Country: None (occurrence: None)
  Receive Date: 20060816
  Receipt Date: 20060814
  Transmission Date: 20061208
  Serious: Yes (Disabling)
  Sender: FDA-Public Use
  Company Number: US-GLAXOSMITHKLINE-A0616540A

PATIENT
  Sex: Female

DRUGS (2)
  1. WELLBUTRIN XL [Suspect]
     Indication: DEPRESSION
     Dosage: 450MG PER DAY
     Route: 048
     Dates: start: 20010101
  2. SEROQUEL [Concomitant]

REACTIONS (6)
  - ANXIETY [None]
  - INFLUENZA LIKE ILLNESS [None]
  - MALABSORPTION [None]
  - MEDICATION ERROR [None]
  - NERVOUSNESS [None]
  - TREMOR [None]
